FAERS Safety Report 7786915-5 (Version None)
Quarter: 2011Q3

REPORT INFORMATION
  Report Type: 
  Country: None (occurrence: None)
  Receive Date: 20110929
  Receipt Date: 20110919
  Transmission Date: 20111222
  Serious: Yes (Other)
  Sender: FDA-Public Use
  Company Number: GB-BRISTOL-MYERS SQUIBB COMPANY-16110942

PATIENT
  Sex: Female

DRUGS (5)
  1. CYCLOPHOSPHAMIDE [Suspect]
     Indication: VASCULITIS
     Route: 048
  2. AZATHIOPRINE [Suspect]
     Indication: VASCULITIS
  3. MYCOPHENOLATE MOFETIL [Suspect]
     Indication: VASCULITIS
  4. CYCLOPHOSPHAMIDE [Suspect]
     Indication: VASCULITIS
     Dosage: TOTAL 3 DOSES FOLLOWING BY 3 WEEKS FOR ANOTHER 2-4 DOSES
     Route: 042
  5. CYCLOSPORINE [Suspect]
     Indication: VASCULITIS
     Dosage: INITIAL DOSE:1MG/KG MAX DOSE:60MG DOSE DEC:10MG/D

REACTIONS (9)
  - MICROSCOPIC POLYANGIITIS [None]
  - LOWER RESPIRATORY TRACT INFECTION [None]
  - ALOPECIA [None]
  - NASAL SEPTUM DISORDER [None]
  - INFECTIOUS MONONUCLEOSIS [None]
  - GASTROENTERITIS [None]
  - URINARY TRACT INFECTION [None]
  - INFERTILITY [None]
  - OTITIS MEDIA [None]
